FAERS Safety Report 18490179 (Version 1)
Quarter: 2020Q4

REPORT INFORMATION
  Report Type: Spontaneous
  Country: NL (occurrence: NL)
  Receive Date: 20201111
  Receipt Date: 20201111
  Transmission Date: 20210114
  Serious: Yes (Hospitalization)
  Sender: FDA-Public Use
  Company Number: NL-TEVA-2020-NL-1847111

PATIENT
  Sex: Female
  Weight: 62 kg

DRUGS (6)
  1. ARIPIPRAZOL TABLET 30MG / ABILIFY TABLET 30MG [Concomitant]
     Dosage: 30 MG (MILLIGRAM), THERAPY START DATE; THERAPY END DATE : ASKED BUT UNKNOWN
  2. OXAZEPAM / BRAND NAME NOT SPECIFIED [Concomitant]
     Active Substance: OXAZEPAM
     Dosage: THERAPY START DATE; THERAPY END DATE : ASKED BUT UNKNOWN
  3. VENLAFAXINE CAPSULE MGA 150MG / BRAND NAME NOT SPECIFIED [Concomitant]
     Dosage: 150 MG, THERAPY START DATE; THERAPY END DATE : ASKED BUT UNKNOWN
  4. CLOZAPINE / BRAND NAME NOT SPECIFIED [Suspect]
     Active Substance: CLOZAPINE
     Indication: SCHIZOPHRENIA
     Dosage: 600 MILLIGRAM DAILY; THERAPY END DATE : ASKED BUT UNKNOWN
     Dates: start: 1994
  5. OMEPRAZOL CAPSULE MSR 20MG / BRAND NAME NOT SPECIFIED [Concomitant]
     Active Substance: OMEPRAZOLE
     Dosage: 20 MG (MILLIGRAM), THERAPY START DATE; THERAPY END DATE : ASKED BUT UNKNOWN
  6. METFORMINE/GLIBENCLAMIDE TABLET FO 500/5MG / BRAND NAME NOT SPECIFIED [Concomitant]
     Dosage: NOT KNOWN ANYMORE, THERAPY START DATE; THERAPY END DATE : ASKED BUT UNKNOWN

REACTIONS (3)
  - Diabetes mellitus [Recovered/Resolved]
  - Weight increased [Recovered/Resolved]
  - Psychotic disorder [Recovered/Resolved]
